FAERS Safety Report 10718440 (Version 1)
Quarter: 2015Q1

REPORT INFORMATION
  Report Type: Report from Study
  Country: DK (occurrence: DK)
  Receive Date: 20150119
  Receipt Date: 20150119
  Transmission Date: 20150721
  Serious: Yes (Hospitalization)
  Sender: FDA-Public Use
  Company Number: DK-PFIZER INC-2015014402

PATIENT
  Age: 58 Year
  Sex: Male
  Weight: 98 kg

DRUGS (15)
  1. MORPHIN [Concomitant]
     Active Substance: MORPHINE
     Dosage: 10 MG DAILY
     Dates: start: 20140411, end: 20140512
  2. PARACETAMOL [Concomitant]
     Active Substance: ACETAMINOPHEN
     Dosage: 4 G DAILY
     Dates: start: 20140312
  3. DULCOLAX [Concomitant]
     Active Substance: BISACODYL OR DOCUSATE SODIUM
     Dosage: 5 MG DAILY
     Dates: start: 20140711
  4. MORPHIN [Concomitant]
     Active Substance: MORPHINE
     Dosage: 30 MG DAILY
     Dates: start: 20140720
  5. DOXORUBICIN HCL [Suspect]
     Active Substance: DOXORUBICIN HYDROCHLORIDE
     Dosage: 150 MG, UNK
     Route: 013
  6. DOXORUBICIN HCL [Suspect]
     Active Substance: DOXORUBICIN HYDROCHLORIDE
     Dosage: 75 MG, UNK
     Route: 013
  7. ONDANSETRON [Concomitant]
     Active Substance: ONDANSETRON
     Dosage: 4 MG DAILY
     Dates: start: 20140512
  8. TAZOCIN [Concomitant]
     Active Substance: PIPERACILLIN SODIUM\TAZOBACTAM SODIUM
     Dosage: 12 G DAILY
     Dates: start: 20140314, end: 20140317
  9. MORPHIN [Concomitant]
     Active Substance: MORPHINE
     Dosage: 20 MG DAILY
     Dates: start: 20140512, end: 20140720
  10. SORAFENIB [Suspect]
     Active Substance: SORAFENIB
     Indication: HEPATOCELLULAR CARCINOMA
     Dosage: 800 MG, DAILY
     Dates: start: 20140922, end: 20141020
  11. CENTYL [Concomitant]
     Dosage: 1 TABLET DAILY
  12. CORODIL [Concomitant]
     Active Substance: DIPYRIDAMOLE
     Dosage: 20 MG DAILY
  13. SPIRONOLACTONE. [Concomitant]
     Active Substance: SPIRONOLACTONE
     Indication: ASCITES
     Dosage: 100 MG DAILY
     Dates: start: 20140829
  14. DOXORUBICIN HCL [Suspect]
     Active Substance: DOXORUBICIN HYDROCHLORIDE
     Indication: HEPATOCELLULAR CARCINOMA
     Dosage: 75 MG, UNK
     Route: 013
  15. DOXORUBICIN HCL [Suspect]
     Active Substance: DOXORUBICIN HYDROCHLORIDE
     Dosage: 75 MG, UNK
     Route: 013

REACTIONS (1)
  - Hyponatraemia [Unknown]

NARRATIVE: CASE EVENT DATE: 20141023
